FAERS Safety Report 16269254 (Version 1)
Quarter: 2019Q2

REPORT INFORMATION
  Report Type: Spontaneous
  Country: US (occurrence: US)
  Receive Date: 20190328
  Receipt Date: 20190328
  Transmission Date: 20190711
  Serious: Yes (Death)
  Sender: FDA-Public Use
  Company Number: None

PATIENT
  Age: 68 Year
  Sex: Female

DRUGS (7)
  1. FLUOCINONIDE. [Concomitant]
     Active Substance: FLUOCINONIDE
  2. DULOXETINE. [Concomitant]
     Active Substance: DULOXETINE
  3. DEXAMETHASON [Concomitant]
     Active Substance: DEXAMETHASONE
  4. TEMAZEPAM. [Concomitant]
     Active Substance: TEMAZEPAM
  5. GABAPENTIN. [Concomitant]
     Active Substance: GABAPENTIN
  6. DIAZEPAM. [Concomitant]
     Active Substance: DIAZEPAM
  7. FORTEO [Suspect]
     Active Substance: TERIPARATIDE
     Indication: PRODUCT USED FOR UNKNOWN INDICATION
     Dosage: ?          OTHER DOSE:0.08 ML ;?
     Route: 058
     Dates: start: 20190104

REACTIONS (1)
  - Death [None]

NARRATIVE: CASE EVENT DATE: 20190322
